FAERS Safety Report 17938445 (Version 1)
Quarter: 2020Q2

REPORT INFORMATION
  Report Type: Spontaneous
  Country: DE (occurrence: DE)
  Receive Date: 20200624
  Receipt Date: 20200624
  Transmission Date: 20200714
  Serious: Yes (Hospitalization)
  Sender: FDA-Public Use
  Company Number: DE-MYLANLABS-2020M1057685

PATIENT
  Age: 78 Year
  Sex: Male
  Weight: 96 kg

DRUGS (12)
  1. CANDESARTAN CILEXETIL AND HYDROCHLOROTHIAZIDE [Concomitant]
     Active Substance: CANDESARTAN CILEXETIL\HYDROCHLOROTHIAZIDE
     Dosage: 32|25 MG, 0.5-0-0-0
  2. ATORVASTATIN [Concomitant]
     Active Substance: ATORVASTATIN
     Dosage: 20 MILLIGRAM, QD, 0-0-1-0
  3. PANTOPRAZOL                        /01263201/ [Concomitant]
     Active Substance: PANTOPRAZOLE
     Dosage: 40 MG
  4. ACETYLSALICYLIC ACID [Concomitant]
     Active Substance: ASPIRIN
     Dosage: 100 MILLIGRAM, QD, 0-1-0-0
  5. NALOXONE W/TILIDINE [Concomitant]
     Active Substance: NALOXONE HYDROCHLORIDE\TILIDINE HYDROCHLORIDE
     Dosage: 8|100 MG, BEDARF
  6. AMIODARONE [Suspect]
     Active Substance: AMIODARONE
     Indication: PRODUCT USED FOR UNKNOWN INDICATION
     Dosage: 200 MG, 1-0-0-0
  7. SERTRALINE [Concomitant]
     Active Substance: SERTRALINE HYDROCHLORIDE
     Dosage: 100 MILLIGRAM, QD
  8. METOCLOPRAMID                      /00041901/ [Concomitant]
     Active Substance: METOCLOPRAMIDE
     Dosage: BEDARF
  9. METAMIZOL                          /06276701/ [Concomitant]
     Active Substance: METAMIZOLE
     Dosage: 500 MILLIGRAM
  10. ELEBRATO ELLIPTA [Concomitant]
     Active Substance: FLUTICASONE FUROATE\UMECLIDINIUM BROMIDE\VILANTEROL TRIFENATATE
     Dosage: 92|55|22 ?G, 1-0-0-0
     Route: 055
  11. BISOPROLOL [Suspect]
     Active Substance: BISOPROLOL
     Indication: PRODUCT USED FOR UNKNOWN INDICATION
     Dosage: 10 MG, 0-0-0.5-0
  12. TAMSULOSIN [Concomitant]
     Active Substance: TAMSULOSIN
     Dosage: 0.4 MILLIGRAM, QD

REACTIONS (8)
  - Oxygen saturation decreased [Unknown]
  - General physical health deterioration [Unknown]
  - Dyspnoea [Unknown]
  - Dizziness [Unknown]
  - Prolonged expiration [Unknown]
  - Atrial fibrillation [Unknown]
  - Hypertension [Unknown]
  - Headache [Unknown]
